FAERS Safety Report 6586121-6 (Version None)
Quarter: 2010Q1

REPORT INFORMATION
  Report Type: 
  Country: None (occurrence: None)
  Receive Date: 20100217
  Receipt Date: 20090116
  Transmission Date: 20100710
  Serious: No
  Sender: FDA-Public Use
  Company Number: US-ALLERGAN-0816396US

PATIENT
  Age: 60 Year
  Sex: Female
  Weight: 65.76 kg

DRUGS (3)
  1. BOTOX COSMETIC [Suspect]
     Indication: SKIN WRINKLING
     Dosage: 36 UNITS, SINGLE
     Route: 030
     Dates: start: 20081218, end: 20081218
  2. RADIESSE [Concomitant]
     Indication: SKIN WRINKLING
  3. RESTYLANE [Concomitant]
     Indication: SKIN WRINKLING

REACTIONS (1)
  - EYELID PTOSIS [None]
